FAERS Safety Report 5910933-2 (Version None)
Quarter: 2008Q4

REPORT INFORMATION
  Report Type: 
  Country: None (occurrence: None)
  Receive Date: 20081007
  Receipt Date: 20080711
  Transmission Date: 20090506
  Serious: No
  Sender: FDA-Public Use
  Company Number: US-ASTRAZENECA-2008UW13942

PATIENT
  Age: 49 Year
  Sex: Female
  Weight: 75.7 kg

DRUGS (2)
  1. ARIMIDEX [Suspect]
     Indication: BREAST CANCER FEMALE
     Route: 048
     Dates: start: 20060101
  2. NEXIUM [Concomitant]
     Route: 048

REACTIONS (6)
  - ARTHRALGIA [None]
  - FATIGUE [None]
  - GRIP STRENGTH DECREASED [None]
  - HYPERHIDROSIS [None]
  - MIGRAINE [None]
  - TEMPERATURE INTOLERANCE [None]
